FAERS Safety Report 9423645 (Version 4)
Quarter: 2013Q4

REPORT INFORMATION
  Report Type: Report from Study
  Country: US (occurrence: US)
  Receive Date: 20130726
  Receipt Date: 20131204
  Transmission Date: 20140711
  Serious: Yes (Hospitalization, Other)
  Sender: FDA-Public Use
  Company Number: US-ROCHE-1253372

PATIENT
  Age: 51 Year
  Sex: Female

DRUGS (19)
  1. AVASTIN [Suspect]
     Indication: NON-SMALL CELL LUNG CANCER
     Route: 042
     Dates: start: 20130521
  2. AVASTIN [Suspect]
     Indication: METASTASES TO LIVER
  3. AVASTIN [Suspect]
     Indication: METASTASES TO BONE
  4. AVASTIN [Suspect]
     Indication: ADENOCARCINOMA
  5. TARCEVA [Suspect]
     Indication: LUNG NEOPLASM MALIGNANT
     Route: 065
     Dates: start: 20130521
  6. TARCEVA [Suspect]
     Indication: METASTASES TO LIVER
  7. TARCEVA [Suspect]
     Indication: METASTASES TO BONE
  8. TARCEVA [Suspect]
     Indication: ADENOCARCINOMA
  9. CLINDAMYCIN PHOSPHATE [Concomitant]
     Route: 065
  10. LACTULOSE [Concomitant]
     Dosage: 10 G/15 ML
     Route: 065
  11. ZOFRAN [Concomitant]
     Route: 048
  12. ZANTAC [Concomitant]
     Route: 042
  13. TYLENOL [Concomitant]
     Route: 048
  14. AMBIEN [Concomitant]
     Dosage: AT NIGHT
     Route: 048
  15. HYDROCORTISONE [Concomitant]
     Route: 065
  16. COLACE [Concomitant]
     Dosage: FREQUENCY 1 TO 3 CAPSULES DAILY.
     Route: 048
  17. DILAUDID [Concomitant]
     Route: 048
  18. DEXAMETHASONE [Concomitant]
     Route: 048
  19. MS CONTIN [Concomitant]
     Route: 048

REACTIONS (25)
  - Pleural effusion [Unknown]
  - Adenocarcinoma [Unknown]
  - Pleural effusion [Unknown]
  - Atelectasis [Unknown]
  - Rhinorrhoea [Unknown]
  - Rash [Unknown]
  - Acne [Unknown]
  - Fatigue [Unknown]
  - Dyspnoea [Unknown]
  - Cough [Unknown]
  - Abasia [Unknown]
  - Muscular weakness [Unknown]
  - Blood alkaline phosphatase abnormal [Unknown]
  - Osteoporosis [Unknown]
  - Back pain [Unknown]
  - Constipation [Unknown]
  - Malignant neoplasm of thorax [Unknown]
  - Metastases to spine [Unknown]
  - Metastases to central nervous system [Unknown]
  - Spinal cord compression [Unknown]
  - Spinal cord compression [Unknown]
  - Disease progression [Unknown]
  - Bone pain [Unknown]
  - Metastases to liver [Unknown]
  - Dermatitis acneiform [Unknown]
